FAERS Safety Report 25009462 (Version 1)
Quarter: 2025Q1

REPORT INFORMATION
  Report Type: Report from Study
  Country: US (occurrence: US)
  Receive Date: 20250225
  Receipt Date: 20250225
  Transmission Date: 20250409
  Serious: Yes (Other)
  Sender: RANBAXY
  Company Number: US-SUN PHARMACEUTICAL INDUSTRIES LTD-2025R1-495191

PATIENT
  Age: 67 Year
  Sex: Female

DRUGS (1)
  1. PREDNISONE [Suspect]
     Active Substance: PREDNISONE
     Indication: Erdheim-Chester disease
     Dosage: 50 MILLIGRAM, DAILY
     Route: 065

REACTIONS (3)
  - Hyperglycaemia [Unknown]
  - Skin disorder [Unknown]
  - Ulcer [Unknown]
